FAERS Safety Report 15423879 (Version 2)
Quarter: 2019Q2

REPORT INFORMATION
  Report Type: Report from Study
  Country: US (occurrence: US)
  Receive Date: 20180925
  Receipt Date: 20190618
  Transmission Date: 20190711
  Serious: Yes (Hospitalization, Other)
  Sender: FDA-Public Use
  Company Number: US-BRISTOL-MYERS SQUIBB COMPANY-BMS-2018-087156

PATIENT
  Age: 74 Year
  Sex: Female
  Weight: 106.6 kg

DRUGS (1)
  1. NIVOLUMAB [Suspect]
     Active Substance: NIVOLUMAB
     Indication: LUNG ADENOCARCINOMA
     Dosage: 240 MILLIGRAM
     Route: 042
     Dates: start: 20180207, end: 20180509

REACTIONS (3)
  - Urinary tract infection enterococcal [Unknown]
  - Escherichia urinary tract infection [Unknown]
  - Atrial fibrillation [Unknown]

NARRATIVE: CASE EVENT DATE: 20180625
